FAERS Safety Report 23281672 (Version 2)
Quarter: 2024Q1

REPORT INFORMATION
  Report Type: Spontaneous
  Country: US (occurrence: US)
  Receive Date: 20231211
  Receipt Date: 20240110
  Transmission Date: 20240409
  Serious: No
  Sender: FDA-Public Use
  Company Number: US-GSK-US2023168818

PATIENT
  Age: 56 Year
  Sex: Female
  Weight: 109.75 kg

DRUGS (2)
  1. BENLYSTA [Suspect]
     Active Substance: BELIMUMAB
     Indication: Systemic lupus erythematosus
     Dosage: 120 MG, Q4W,6 VIALS
     Route: 042
     Dates: start: 20221202
  2. BENLYSTA [Suspect]
     Active Substance: BELIMUMAB
     Dosage: 400 MG, Q4W, 1 VIAL
     Route: 042
     Dates: start: 20221202

REACTIONS (4)
  - COVID-19 [Unknown]
  - SARS-CoV-2 test positive [Unknown]
  - Product dose omission issue [Unknown]
  - Product supply issue [Unknown]

NARRATIVE: CASE EVENT DATE: 20231127
